FAERS Safety Report 10039692 (Version 2)
Quarter: 2014Q2

REPORT INFORMATION
  Report Type: Spontaneous
  Country: US (occurrence: US)
  Receive Date: 20140326
  Receipt Date: 20140522
  Transmission Date: 20141212
  Serious: Yes (Hospitalization, Other)
  Sender: FDA-Public Use
  Company Number: US-TEVA-470466USA

PATIENT
  Age: 23 Year
  Sex: Female

DRUGS (1)
  1. SPRINTEC [Suspect]
     Indication: UTERINE SPASM

REACTIONS (6)
  - Cerebrovascular accident [Recovered/Resolved]
  - Hypoaesthesia [Recovered/Resolved]
  - Aphasia [Recovered/Resolved]
  - Loss of consciousness [Recovered/Resolved]
  - Movement disorder [Recovered/Resolved]
  - Dysarthria [Recovered/Resolved]
